FAERS Safety Report 21297925 (Version 1)
Quarter: 2022Q3

REPORT INFORMATION
  Report Type: Spontaneous
  Country: US (occurrence: US)
  Receive Date: 20220906
  Receipt Date: 20220906
  Transmission Date: 20221027
  Serious: Yes (Hospitalization, Other)
  Sender: FDA-Public Use
  Company Number: US-GLAXOSMITHKLINE-US2022GSK127885

PATIENT

DRUGS (3)
  1. MEPOLIZUMAB [Suspect]
     Active Substance: MEPOLIZUMAB
     Indication: Asthma
     Dosage: 100 MG/ML EVERY 4  WEEKS
  2. METFORMIN [Concomitant]
     Active Substance: METFORMIN HYDROCHLORIDE
     Indication: Type 2 diabetes mellitus
     Dosage: DAILY
  3. CANDESARTAN [Concomitant]
     Active Substance: CANDESARTAN
     Indication: Product used for unknown indication
     Dosage: UNK

REACTIONS (14)
  - Posterior reversible encephalopathy syndrome [Recovered/Resolved]
  - Mental status changes [Recovered/Resolved]
  - Sensation of foreign body [Recovered/Resolved]
  - Unresponsive to stimuli [Recovered/Resolved]
  - Scratch [Recovered/Resolved]
  - Dysarthria [Recovered/Resolved]
  - Incoherent [Recovered/Resolved]
  - Headache [Recovered/Resolved]
  - Condition aggravated [Recovered/Resolved]
  - Paraesthesia [Recovered/Resolved]
  - Focal dyscognitive seizures [Recovered/Resolved]
  - Slow speech [Recovered/Resolved]
  - Pupillary deformity [Recovered/Resolved]
  - Dysmetria [Recovered/Resolved]
